FAERS Safety Report 4597607-8 (Version None)
Quarter: 2005Q1

REPORT INFORMATION
  Report Type: 
  Country: None (occurrence: None)
  Receive Date: 20050228
  Receipt Date: 20050228
  Transmission Date: 20050727
  Serious: Yes (Hospitalization)
  Sender: FDA-Public Use
  Company Number: None

PATIENT
  Sex: Male

DRUGS (10)
  1. PERPHENAZINE [Suspect]
     Indication: SCHIZOAFFECTIVE DISORDER
  2. BENZTROPINE [Concomitant]
  3. QUETIAPINE FUMARATE [Concomitant]
  4. SIMVASTATIN [Concomitant]
  5. MULTI-VITAMIN [Concomitant]
  6. METOPROLOL [Concomitant]
  7. LITHIUM [Concomitant]
  8. LEVOTHYROXINE [Concomitant]
  9. BUPROPION HCL [Concomitant]
  10. ASPIRIN [Concomitant]

REACTIONS (5)
  - EXTRAPYRAMIDAL DISORDER [None]
  - MENTAL STATUS CHANGES [None]
  - NEUROLEPTIC MALIGNANT SYNDROME [None]
  - TREMOR [None]
  - URINARY INCONTINENCE [None]
